FAERS Safety Report 8860443 (Version 1)
Quarter: 2012Q4

REPORT INFORMATION
  Report Type: 
  Country: US (occurrence: US)
  Receive Date: 20121025
  Receipt Date: 20121025
  Transmission Date: 20130627
  Serious: Yes (Other)
  Sender: FDA-Public Use
  Company Number: US-JNJFOC-20121009317

PATIENT
  Sex: Male
  Weight: 122.47 kg

DRUGS (24)
  1. NUCYNTA [Suspect]
     Indication: PAIN
     Dosage: every 4-6 hours
     Route: 065
     Dates: start: 201209
  2. NEXIUM [Concomitant]
     Route: 048
  3. MIRTAZAPINE [Concomitant]
     Indication: DEPRESSION
     Dosage: in PM
     Route: 048
  4. SPIRONOLACTONE [Concomitant]
     Route: 048
  5. PREDNISONE [Concomitant]
     Indication: ARTHRITIS
     Route: 048
  6. ALLOPURINOL [Concomitant]
     Indication: RENAL DISORDER
     Route: 048
  7. LEXAPRO [Concomitant]
     Indication: DEPRESSION
     Route: 048
  8. FOLIC ACID [Concomitant]
     Indication: ARTHRITIS
     Route: 048
  9. ASPIRIN [Concomitant]
     Indication: CARDIAC DISORDER
     Route: 048
  10. FISH OIL [Concomitant]
     Indication: CARDIAC DISORDER
     Route: 048
  11. OMEGA 3 [Concomitant]
     Indication: CARDIAC DISORDER
     Route: 048
  12. METHOTREXATE [Concomitant]
     Indication: ARTHRITIS
     Route: 048
  13. METOPROLOL [Concomitant]
     Indication: BLOOD PRESSURE
     Route: 048
  14. POTASSIUM CHLORIDE [Concomitant]
     Route: 048
  15. LASIX [Concomitant]
     Route: 048
  16. WARFARIN [Concomitant]
     Indication: CARDIAC DISORDER
     Route: 065
  17. GABAPENTIN [Concomitant]
     Route: 048
  18. SULFASALAZINE [Concomitant]
     Route: 048
  19. AMIODARONE [Concomitant]
     Indication: CARDIAC DISORDER
     Route: 048
  20. CLONAZEPAM [Concomitant]
     Indication: SLEEP DISORDER
     Dosage: in PM
     Route: 048
  21. MIRAPEX [Concomitant]
     Indication: RESTLESS LEGS SYNDROME
     Dosage: in PM
     Route: 048
  22. CRESTOR [Concomitant]
     Indication: BLOOD CHOLESTEROL
     Route: 048
  23. DIVALPROEX SODIUM [Concomitant]
     Indication: MIGRAINE
     Dosage: in PM
     Route: 048
  24. LEVOTHYROXINE [Concomitant]
     Indication: HYPOTHYROIDISM
     Route: 048

REACTIONS (1)
  - International normalised ratio increased [Not Recovered/Not Resolved]
